FAERS Safety Report 4708146-5 (Version None)
Quarter: 2005Q2

REPORT INFORMATION
  Report Type: 
  Country: None (occurrence: None)
  Receive Date: 20050629
  Receipt Date: 20050510
  Transmission Date: 20051028
  Serious: No
  Sender: FDA-Public Use
  Company Number: 05P-163-0300230-00

PATIENT
  Age: 71 Year
  Sex: Female
  Weight: 58.9676 kg

DRUGS (10)
  1. HUMIRA [Suspect]
     Indication: RHEUMATOID ARTHRITIS
     Dosage: 40 MG, 1 IN 2 WK, SUBCUTANEOUS
     Route: 058
     Dates: start: 20050101
  2. METHOTREXATE [Concomitant]
  3. MELOXICAM [Concomitant]
  4. LANSOPRAZOLE [Concomitant]
  5. LEVATHYROID [Concomitant]
  6. DYAZIDE [Concomitant]
  7. TOPROL-XL [Concomitant]
  8. TRAZODONE [Concomitant]
  9. VYTORIN [Concomitant]
  10. NICOTINIC ACID [Concomitant]

REACTIONS (5)
  - ACNE [None]
  - OPEN WOUND [None]
  - SKIN BURNING SENSATION [None]
  - SKIN EXFOLIATION [None]
  - SKIN ULCER [None]
